FAERS Safety Report 9745972 (Version 1)
Quarter: 2013Q4

REPORT INFORMATION
  Report Type: Spontaneous
  Country: US (occurrence: None)
  Receive Date: 20131206
  Receipt Date: 20131206
  Transmission Date: 20140711
  Serious: Yes (Other)
  Sender: FDA-Public Use
  Company Number: None

PATIENT
  Age: 31 Year
  Sex: Female

DRUGS (1)
  1. CARBAMAZEPINE 200 MG APOTEX [Suspect]
     Indication: CONVULSION
     Dosage: 1 PILL, BID, ORAL
     Route: 048
     Dates: start: 20131128, end: 20131130

REACTIONS (2)
  - Headache [None]
  - Feeling abnormal [None]
